FAERS Safety Report 25847396 (Version 2)
Quarter: 2025Q4

REPORT INFORMATION
  Report Type: Spontaneous
  Country: EU (occurrence: EU)
  Receive Date: 20250925
  Receipt Date: 20251001
  Transmission Date: 20260118
  Serious: Yes (Other)
  Sender: PFIZER
  Company Number: EU-PFIZER INC-PV202500113870

PATIENT
  Age: 38 Year
  Sex: Female

DRUGS (3)
  1. SIROLIMUS [Suspect]
     Active Substance: SIROLIMUS
     Indication: Tuberous sclerosis complex
     Dosage: 6 MG, 1X/DAY (LOADING DOSE)
     Route: 048
  2. SIROLIMUS [Suspect]
     Active Substance: SIROLIMUS
     Indication: Rhabdomyoma
     Dosage: 2 MG, 1X/DAY
     Route: 048
  3. SIROLIMUS [Suspect]
     Active Substance: SIROLIMUS
     Dosage: DOSE WAS INCREASED STEPWISE UP TO 16 MG ONCE DAILY AIMING AT A WHOLE BLOOD SIROLIMUS LEVEL OF 10 NG/
     Route: 048

REACTIONS (5)
  - Gestational diabetes [Recovered/Resolved]
  - Productive cough [Recovered/Resolved]
  - Maternal exposure during pregnancy [Unknown]
  - Off label use [Unknown]
  - Drug effective for unapproved indication [Unknown]
